FAERS Safety Report 24665980 (Version 1)
Quarter: 2024Q4

REPORT INFORMATION
  Report Type: Spontaneous
  Country: US (occurrence: None)
  Receive Date: 20241126
  Receipt Date: 20241126
  Transmission Date: 20250115
  Serious: Yes (Death)
  Sender: Public
  Company Number: None

PATIENT
  Age: 88 Year
  Sex: Female

DRUGS (5)
  1. BOTOX [Suspect]
     Active Substance: ONABOTULINUMTOXINA
     Indication: Blepharospasm
     Dosage: OTHER FREQUENCY : EVERY 90 DAYS;?OTHER ROUTE : INJECTION;?FREQ: INJECT INTO AFFECTED AREA BY PHYSICI
     Route: 050
     Dates: start: 20210910
  2. HYOSCYAMINE [Concomitant]
  3. LORAZEPAM [Concomitant]
     Active Substance: LORAZEPAM
  4. MORPHINE SULFATE [Concomitant]
     Active Substance: MORPHINE SULFATE
  5. ACETAMINOPHEN [Concomitant]
     Active Substance: ACETAMINOPHEN

REACTIONS (1)
  - Death [None]

NARRATIVE: CASE EVENT DATE: 20241125
